FAERS Safety Report 9964366 (Version 1)
Quarter: 2014Q1

REPORT INFORMATION
  Report Type: Spontaneous
  Country: FR (occurrence: FR)
  Receive Date: 20140305
  Receipt Date: 20140305
  Transmission Date: 20141002
  Serious: Yes (Disabling)
  Sender: FDA-Public Use
  Company Number: FR-GLAXOSMITHKLINE-B0972165A

PATIENT
  Age: 48 Year
  Sex: Male

DRUGS (5)
  1. SERETIDE [Suspect]
     Indication: ASTHMA
     Dosage: 1000MCG TWICE PER DAY
     Route: 055
  2. PREDNISOLONE [Suspect]
     Indication: BRONCHITIS CHRONIC
     Dosage: 80MG PER DAY
     Route: 048
     Dates: end: 201309
  3. BECLO-RHINO [Suspect]
     Indication: PRODUCT USED FOR UNKNOWN INDICATION
     Dosage: 100MCG PER DAY
     Route: 045
  4. BRICANYL [Concomitant]
     Indication: ASTHMA
     Route: 055
  5. ATROVENT [Concomitant]
     Indication: ASTHMA
     Route: 055

REACTIONS (2)
  - Diabetes mellitus [Recovered/Resolved with Sequelae]
  - Glycosylated haemoglobin increased [None]
